FAERS Safety Report 22621910 (Version 1)
Quarter: 2023Q2

REPORT INFORMATION
  Report Type: Spontaneous
  Country: CA (occurrence: CA)
  Receive Date: 20230620
  Receipt Date: 20230620
  Transmission Date: 20230721
  Serious: Yes (Other)
  Sender: FDA-Public Use
  Company Number: CA-MYLANLABS-2023M1063342

PATIENT
  Age: 67 Year
  Sex: Female

DRUGS (1)
  1. PREGABALIN [Suspect]
     Active Substance: PREGABALIN
     Indication: Product used for unknown indication
     Dosage: UNK
     Route: 048

REACTIONS (6)
  - Cellulitis [Unknown]
  - Blister [Unknown]
  - Dermatosis [Unknown]
  - Headache [Unknown]
  - Nausea [Unknown]
  - Product prescribing error [Unknown]
